FAERS Safety Report 7715190-2 (Version None)
Quarter: 2011Q3

REPORT INFORMATION
  Report Type: 
  Country: None (occurrence: None)
  Receive Date: 20110822
  Receipt Date: 20110805
  Transmission Date: 20111222
  Serious: Yes (Death, Other)
  Sender: FDA-Public Use
  Company Number: 2011MA011501

PATIENT
  Age: 26 Year
  Sex: Female

DRUGS (8)
  1. 3,4-METHYLENEDIOXYMETHAMPHETAMINE (NO PREF. NAME) [Suspect]
  2. METHAMPHETAMINE HYDROCHLORIDE [Suspect]
  3. OLANZAPINE [Suspect]
  4. FLUVOXAMINE MALEATE [Suspect]
  5. NORDIAZEPAM (NO PREF. NAME) [Suspect]
  6. DIAZEPAM [Suspect]
  7. AMPHETAMINE (NO PREF. NAME) [Suspect]
  8. IBUPROFEN [Suspect]

REACTIONS (3)
  - HEPATITIS C [None]
  - TOXICITY TO VARIOUS AGENTS [None]
  - DRUG INTERACTION [None]
